FAERS Safety Report 6735325-8 (Version None)
Quarter: 2010Q2

REPORT INFORMATION
  Report Type: 
  Country: None (occurrence: None)
  Receive Date: 20100519
  Receipt Date: 20100505
  Transmission Date: 20101027
  Serious: Yes (Other)
  Sender: FDA-Public Use
  Company Number: US-1181730

PATIENT
  Age: 45 Year
  Sex: Male
  Weight: 90.7194 kg

DRUGS (9)
  1. TOBRADEX [Suspect]
     Indication: EYE OPERATION
     Dosage: QID OPHTHALMIC
     Route: 047
     Dates: end: 20100331
  2. TOBRADEX [Suspect]
     Indication: PROMOTION OF WOUND HEALING
     Dosage: QID OPHTHALMIC
     Route: 047
     Dates: end: 20100331
  3. TOBRADEX [Suspect]
     Indication: EYE OPERATION
     Route: 047
  4. ABILIFY [Concomitant]
  5. DRUGS FOR ACID RELATED DISORDERS [Concomitant]
  6. VERAPAMIL [Concomitant]
  7. CELEXA [Concomitant]
  8. IBUPROFEN [Concomitant]
  9. VICODIN [Concomitant]

REACTIONS (16)
  - ABNORMAL SENSATION IN EYE [None]
  - BURNING SENSATION [None]
  - DIPLOPIA [None]
  - EYE DISCHARGE [None]
  - EYE INFECTION BACTERIAL [None]
  - EYE IRRITATION [None]
  - EYE PAIN [None]
  - EYE SWELLING [None]
  - EYELID DISORDER [None]
  - FOREIGN BODY SENSATION IN EYES [None]
  - HEADACHE [None]
  - OCULAR HYPERAEMIA [None]
  - PHOTOPHOBIA [None]
  - SCAR [None]
  - SUTURE RELATED COMPLICATION [None]
  - VISION BLURRED [None]
